FAERS Safety Report 9289989 (Version 1)
Quarter: 2013Q2

REPORT INFORMATION
  Report Type: Spontaneous
  Country: US (occurrence: US)
  Receive Date: 20130515
  Receipt Date: 20130515
  Transmission Date: 20140414
  Serious: Yes (Other)
  Sender: FDA-Public Use
  Company Number: US-ACCORD-017589

PATIENT
  Age: 26 Year
  Sex: Male

DRUGS (3)
  1. LEVETIRACETAM [Suspect]
     Indication: OBSESSIVE-COMPULSIVE DISORDER
  2. AMPHETAMINE SALTS [Suspect]
     Indication: OBSESSIVE-COMPULSIVE DISORDER
  3. TOPIRAMATE [Suspect]
     Indication: OBSESSIVE-COMPULSIVE DISORDER

REACTIONS (4)
  - Cognitive disorder [Unknown]
  - Sedation [Unknown]
  - Sexual dysfunction [Unknown]
  - Off label use [Unknown]
